FAERS Safety Report 4376252-3 (Version None)
Quarter: 2004Q2

REPORT INFORMATION
  Report Type: 
  Country: None (occurrence: None)
  Receive Date: 20040611
  Receipt Date: 20020319
  Transmission Date: 20050107
  Serious: Yes (Other)
  Sender: FDA-Public Use
  Company Number: US-MERCK-0203USA02022

PATIENT
  Age: 63 Year
  Sex: Male
  Weight: 70 kg

DRUGS (8)
  1. GLYBURIDE [Concomitant]
     Route: 065
  2. ADVIL [Concomitant]
     Route: 065
  3. VIOXX [Suspect]
     Indication: SCIATICA
     Route: 048
     Dates: start: 20010220, end: 20010315
  4. AVANDIA [Concomitant]
     Route: 065
  5. ZOCOR [Concomitant]
     Route: 048
     Dates: start: 19990101
  6. NORVASC [Concomitant]
     Route: 065
     Dates: start: 19980101
  7. ASPIRIN [Concomitant]
     Route: 065
     Dates: start: 20000101
  8. LOTENSIN [Concomitant]
     Route: 065
     Dates: start: 19980101

REACTIONS (18)
  - BASAL CELL CARCINOMA [None]
  - BLOOD GLUCOSE INCREASED [None]
  - CATARACT [None]
  - CEREBRAL INFARCTION [None]
  - CEREBROVASCULAR ACCIDENT [None]
  - DYSGEUSIA [None]
  - FACIAL PALSY [None]
  - GINGIVAL RECESSION [None]
  - GLYCOSYLATED HAEMOGLOBIN INCREASED [None]
  - HYPOAESTHESIA [None]
  - INJURY [None]
  - LOCALISED OSTEOARTHRITIS [None]
  - PARAESTHESIA [None]
  - ROTATOR CUFF SYNDROME [None]
  - SCAB [None]
  - SEBORRHOEIC KERATOSIS [None]
  - SINUSITIS [None]
  - SPINAL OSTEOARTHRITIS [None]
